FAERS Safety Report 12409296 (Version 1)
Quarter: 2016Q2

REPORT INFORMATION
  Report Type: Spontaneous
  Country: IL (occurrence: IL)
  Receive Date: 20160526
  Receipt Date: 20160526
  Transmission Date: 20160815
  Serious: Yes (Other)
  Sender: FDA-Public Use
  Company Number: IL-PURDUE-GBR-2016-0036543

PATIENT
  Sex: Male

DRUGS (1)
  1. BUTRANS [Suspect]
     Active Substance: BUPRENORPHINE
     Indication: OSTEOARTHRITIS
     Route: 062

REACTIONS (3)
  - Loss of consciousness [Recovered/Resolved]
  - Dementia [Unknown]
  - Wrong technique in product usage process [Unknown]
